FAERS Safety Report 6867045-3 (Version None)
Quarter: 2010Q2

REPORT INFORMATION
  Report Type: 
  Country: None (occurrence: None)
  Receive Date: 20100610
  Receipt Date: 20100126
  Transmission Date: 20101027
  Serious: No
  Sender: FDA-Public Use
  Company Number: 2010SP005819

PATIENT
  Age: 57 Year
  Sex: Female

DRUGS (1)
  1. SAPHRIS [Suspect]
     Indication: SCHIZOPHRENIA
     Dosage: 5 MG; SL
     Route: 060
     Dates: start: 20090915, end: 20090915

REACTIONS (2)
  - ALOPECIA [None]
  - DYSFUNCTIONAL UTERINE BLEEDING [None]
